FAERS Safety Report 16528134 (Version 2)
Quarter: 2019Q3

REPORT INFORMATION
  Report Type: Spontaneous
  Country: BR (occurrence: BR)
  Receive Date: 20190704
  Receipt Date: 20190906
  Transmission Date: 20191004
  Serious: Yes (Life-Threatening, Hospitalization, Other)
  Sender: FDA-Public Use
  Company Number: BR-BRISTOL-MYERS SQUIBB COMPANY-BMS-2019-064556

PATIENT
  Age: 19 Year
  Sex: Female

DRUGS (3)
  1. YERVOY [Suspect]
     Active Substance: IPILIMUMAB
     Indication: METASTATIC MALIGNANT MELANOMA
     Dosage: 3 MILLIGRAM/KILOGRAM, Q3WK
     Route: 042
     Dates: start: 20190417, end: 20190624
  2. OPDIVO [Suspect]
     Active Substance: NIVOLUMAB
     Indication: METASTATIC MALIGNANT MELANOMA
     Dosage: 1 MILLIGRAM/KILOGRAM, Q3WK
     Route: 042
     Dates: start: 20190417
  3. OPDIVO [Suspect]
     Active Substance: NIVOLUMAB
     Indication: PRODUCT USED FOR UNKNOWN INDICATION
     Dosage: 3 MILLIGRAM/KILOGRAM, Q3WK
     Route: 042

REACTIONS (12)
  - Oropharyngeal pain [Unknown]
  - Malignant neoplasm progression [Unknown]
  - Vomiting [Recovered/Resolved]
  - Colitis [Recovered/Resolved]
  - Performance status decreased [Recovered/Resolved]
  - Weight decreased [Unknown]
  - Gastrointestinal infection [Unknown]
  - Decreased appetite [Unknown]
  - Stomatitis [Unknown]
  - Lip pain [Unknown]
  - Pleural effusion [Unknown]
  - Swelling [Recovered/Resolved]

NARRATIVE: CASE EVENT DATE: 20190702
